FAERS Safety Report 14536040 (Version 2)
Quarter: 2018Q2

REPORT INFORMATION
  Report Type: Spontaneous
  Country: US (occurrence: US)
  Receive Date: 20180215
  Receipt Date: 20180508
  Transmission Date: 20180711
  Serious: No
  Sender: FDA-Public Use
  Company Number: US-RADIUS HEALTH INC.-2018US000071

PATIENT
  Age: 93 Year
  Sex: Female

DRUGS (2)
  1. TYMLOS [Suspect]
     Active Substance: ABALOPARATIDE
     Indication: OSTEOPOROSIS POSTMENOPAUSAL
     Dosage: 80 MCG, DAILY
     Route: 058
     Dates: start: 20180106, end: 20180115
  2. TYMLOS [Suspect]
     Active Substance: ABALOPARATIDE
     Dosage: 80 MCG, DAILY
     Route: 058
     Dates: start: 20180106, end: 20180113

REACTIONS (15)
  - Tremor [Unknown]
  - Influenza like illness [Unknown]
  - Chills [Unknown]
  - Balance disorder [Unknown]
  - Dizziness [Unknown]
  - Gait disturbance [Unknown]
  - Dyspnoea [Unknown]
  - Nausea [Unknown]
  - Asthenia [Unknown]
  - Abdominal pain [Unknown]
  - Heart rate increased [Unknown]
  - Fatigue [Unknown]
  - Bone pain [Unknown]
  - Myalgia [Unknown]
  - Palpitations [Unknown]

NARRATIVE: CASE EVENT DATE: 201701
